FAERS Safety Report 8743373 (Version 2)
Quarter: 2012Q4

REPORT INFORMATION
  Report Type: 
  Country: US (occurrence: US)
  Receive Date: 20120824
  Receipt Date: 20120921
  Transmission Date: 20130627
  Serious: Yes (Life-Threatening)
  Sender: FDA-Public Use
  Company Number: US-B.I. PHARMACEUTICALS,INC./RIDGEFIELD-2012-BP-20400BP

PATIENT
  Sex: Female

DRUGS (11)
  1. PRADAXA [Suspect]
     Indication: ATRIAL FIBRILLATION
     Dosage: 150 mg
     Dates: start: 20120604, end: 20120630
  2. DILTIAEM ER [Concomitant]
  3. SYNTHROID [Concomitant]
  4. PRAVASTATIN [Concomitant]
     Dosage: 20 mg
  5. XANAX [Concomitant]
  6. PROTONIX [Concomitant]
  7. VIT D [Concomitant]
  8. PROBIOTICS [Concomitant]
  9. FISH OIL [Concomitant]
  10. LASIX [Concomitant]
  11. MAINTANCE MEDS [Concomitant]

REACTIONS (1)
  - Haemoptysis [Recovered/Resolved]
